FAERS Safety Report 8439728-5 (Version None)
Quarter: 2012Q2

REPORT INFORMATION
  Report Type: 
  Country: None (occurrence: None)
  Receive Date: 20120615
  Receipt Date: 20120608
  Transmission Date: 20120825
  Serious: Yes (Life-Threatening, Hospitalization, Other)
  Sender: FDA-Public Use
  Company Number: JP-PFIZER INC-2012115003

PATIENT
  Age: 73 Year
  Sex: Female
  Weight: 50.9 kg

DRUGS (20)
  1. LYRICA [Suspect]
     Dosage: 75 MG, 1X/DAY BEFORE BEDTIME
     Dates: start: 20120424, end: 20120426
  2. DILTIAZEM HCL [Concomitant]
     Indication: HYPERTENSION
     Dosage: 100 MG, 2X/DAY
     Route: 048
     Dates: start: 20120418, end: 20120601
  3. LOXONIN [Concomitant]
     Indication: PAIN IN EXTREMITY
     Dosage: 60 MG, 2X/DAY
     Route: 048
     Dates: start: 20120418, end: 20120601
  4. FAMOTIDINE [Concomitant]
     Indication: GASTRITIS
     Dosage: 20 MG, 1X/DAY
     Route: 048
     Dates: start: 20120418, end: 20120601
  5. PIROLACTON [Concomitant]
     Indication: CARDIAC FAILURE
     Dosage: 25 MG, 1X/DAY
     Route: 048
     Dates: start: 20120418, end: 20120601
  6. VITAMIN B12 [Concomitant]
     Indication: NEUROPATHY PERIPHERAL
     Dosage: 500 MG, 3X/DAY
     Route: 048
     Dates: start: 20120418, end: 20120601
  7. LYRICA [Suspect]
     Dosage: 150 MG (TWO 75MG CAPSULES, ONE IN THE MORNING, ONE BEFORE BEDTIME
     Dates: start: 20120427, end: 20120502
  8. ISOSORBIDE MONONITRATE [Concomitant]
     Indication: HYPERTENSION
     Dosage: 20 MG, 2X/DAY
     Route: 048
     Dates: start: 20120418, end: 20120601
  9. LASIX [Concomitant]
     Indication: CARDIAC FAILURE
     Dosage: 20 MG, 1X/DAY
     Route: 048
     Dates: start: 20120418, end: 20120601
  10. ASPIRIN [Concomitant]
     Indication: ANGINA PECTORIS
     Dosage: 100 MG, 1X/DAY
     Route: 048
     Dates: start: 20120418, end: 20120601
  11. MAGMITT [Concomitant]
     Indication: CONSTIPATION
     Dosage: 330 MG, 6X/DAY
     Route: 048
     Dates: start: 20120418, end: 20120601
  12. LYRICA [Suspect]
     Dosage: 225 MG (THREE 75 MG CAPSULES), DAILY
     Route: 048
     Dates: start: 20120503, end: 20120507
  13. FERROUS CITRATE [Concomitant]
     Indication: ANAEMIA
     Dosage: 50 MG, 2X/DAY
     Route: 048
     Dates: start: 20120418, end: 20120601
  14. WARFARIN [Concomitant]
     Indication: ARRHYTHMIA
     Dosage: 3.5 MG PER DAY
     Route: 048
     Dates: start: 20120418, end: 20120601
  15. MUCOSTA [Concomitant]
     Indication: GASTRITIS
     Dosage: 100 MG, 2X/DAY
     Route: 048
     Dates: start: 20120418, end: 20120601
  16. LIPITOR [Concomitant]
     Indication: HYPERLIPIDAEMIA
     Dosage: 10 MG, 1X/DAY
     Route: 048
     Dates: start: 20120418, end: 20120601
  17. SENNOSIDE A [Concomitant]
     Indication: CONSTIPATION
     Dosage: UNK, 2X/DAY
     Route: 048
     Dates: start: 20120418, end: 20120601
  18. NOVORAPID [Concomitant]
     Indication: DIABETES MELLITUS
     Dosage: 16 UNITS/DAY
     Route: 058
     Dates: start: 20120418, end: 20120601
  19. NITRODERM [Concomitant]
     Indication: ANGINA PECTORIS
     Dosage: 25 MG, 1X/DAY
     Route: 062
     Dates: start: 20120418, end: 20120601
  20. NEUROTROPIN [Concomitant]
     Indication: PAIN IN EXTREMITY
     Dosage: 4 UNITS, 4X/DAY
     Route: 048
     Dates: start: 20120418, end: 20120601

REACTIONS (1)
  - PLEURAL EFFUSION [None]
